FAERS Safety Report 8139740-X (Version None)
Quarter: 2012Q1

REPORT INFORMATION
  Report Type: 
  Country: None (occurrence: None)
  Receive Date: 20120215
  Receipt Date: 20120213
  Transmission Date: 20120608
  Serious: Yes (Death)
  Sender: FDA-Public Use
  Company Number: PHEH2011US011559

PATIENT
  Sex: Male

DRUGS (1)
  1. EXJADE [Suspect]
     Dosage: 750 MG, DAILY
     Route: 048

REACTIONS (2)
  - MULTI-ORGAN FAILURE [None]
  - LEUKAEMIA RECURRENT [None]
